FAERS Safety Report 8381079-1 (Version None)
Quarter: 2012Q2

REPORT INFORMATION
  Report Type: 
  Country: None (occurrence: None)
  Receive Date: 20120523
  Receipt Date: 20120514
  Transmission Date: 20120825
  Serious: Yes (Other)
  Sender: FDA-Public Use
  Company Number: JP-BRISTOL-MYERS SQUIBB COMPANY-16593683

PATIENT
  Age: 6 Decade
  Sex: Female

DRUGS (1)
  1. METFORMIN HCL [Suspect]
     Indication: DIABETES MELLITUS
     Dosage: JUN11 TO NOV11 (5 MONTHS) 500MG DOSE INCREASED FROM NOV11-8MAY12 (6 MONTHS) 750MG
     Route: 048
     Dates: start: 20110601, end: 20120508

REACTIONS (3)
  - HYPOAESTHESIA [None]
  - PRURITUS [None]
  - CONVULSION [None]
